FAERS Safety Report 25144746 (Version 1)
Quarter: 2025Q2

REPORT INFORMATION
  Report Type: Spontaneous
  Country: US (occurrence: US)
  Receive Date: 20250401
  Receipt Date: 20250401
  Transmission Date: 20250717
  Serious: No
  Sender: DIFGEN PHARMACEUTICALS LLC
  Company Number: None

PATIENT

DRUGS (1)
  1. BUPRENORPHINE [Suspect]
     Active Substance: BUPRENORPHINE
     Indication: Neurodegenerative disorder
     Route: 062

REACTIONS (1)
  - Application site erythema [Recovering/Resolving]
